FAERS Safety Report 9099443 (Version 4)
Quarter: 2014Q1

REPORT INFORMATION
  Report Type: Spontaneous
  Country: CA (occurrence: CA)
  Receive Date: 20130213
  Receipt Date: 20140310
  Transmission Date: 20141002
  Serious: Yes (Other)
  Sender: FDA-Public Use
  Company Number: CA-GLAXOSMITHKLINE-A0992941A

PATIENT
  Age: 34 Year
  Sex: Female
  Weight: 120 kg

DRUGS (13)
  1. BENLYSTA [Suspect]
     Indication: SYSTEMIC LUPUS ERYTHEMATOSUS
     Dosage: 1200MG SEE DOSAGE TEXT
     Route: 042
     Dates: start: 20120525, end: 20131205
  2. METHOTREXATE [Suspect]
     Indication: PRODUCT USED FOR UNKNOWN INDICATION
     Dosage: 25MG WEEKLY
     Route: 065
  3. PLAQUENIL [Concomitant]
     Dosage: 200MG TWICE PER DAY
     Route: 065
  4. NAPROXEN [Concomitant]
     Dosage: 500MG TWICE PER DAY
     Route: 065
  5. PARIET [Concomitant]
     Dosage: 10MG TWICE PER DAY
     Route: 065
  6. SYNTHROID [Concomitant]
     Dosage: 150MCG PER DAY
     Route: 065
  7. CALCIUM [Concomitant]
     Route: 065
  8. VITAMIN D [Concomitant]
     Route: 065
  9. ACTONEL [Concomitant]
     Dosage: 35MG WEEKLY
     Route: 065
  10. PREDNISONE [Concomitant]
     Dosage: 5MG PER DAY
     Route: 065
  11. TYLENOL #3 [Concomitant]
     Route: 065
  12. ATIVAN [Concomitant]
     Dosage: .5MG AS REQUIRED
     Route: 065
  13. HYDROCHLOROTHIAZIDE [Concomitant]
     Dosage: 25MG PER DAY
     Route: 048

REACTIONS (12)
  - Urinary tract infection [Not Recovered/Not Resolved]
  - Sinusitis [Recovering/Resolving]
  - Headache [Recovering/Resolving]
  - Nasal congestion [Recovering/Resolving]
  - Upper-airway cough syndrome [Recovering/Resolving]
  - Ear infection [Recovering/Resolving]
  - Liver function test abnormal [Unknown]
  - Rhinitis [Recovering/Resolving]
  - Pharyngitis [Recovering/Resolving]
  - Malaise [Unknown]
  - Pain [Unknown]
  - Mobility decreased [Unknown]
